FAERS Safety Report 23943230 (Version 1)
Quarter: 2024Q2

REPORT INFORMATION
  Report Type: Spontaneous
  Country: FR (occurrence: FR)
  Receive Date: 20240605
  Receipt Date: 20240605
  Transmission Date: 20240716
  Serious: Yes (Hospitalization, Other)
  Sender: FDA-Public Use
  Company Number: None

PATIENT
  Age: 65 Year
  Sex: Female

DRUGS (3)
  1. KEYTRUDA [Suspect]
     Active Substance: PEMBROLIZUMAB
     Indication: Triple negative breast cancer
     Dosage: EVERY 3 WEEKS (Q3W)
     Route: 042
     Dates: start: 20240405, end: 20240425
  2. CYCLOPHOSPHAMIDE [Suspect]
     Active Substance: CYCLOPHOSPHAMIDE
     Indication: Triple negative breast cancer
     Dosage: EVERY 3 WEEKS (Q3W)
     Route: 042
     Dates: start: 20240310, end: 20240514
  3. EPIRUBICIN HYDROCHLORIDE [Suspect]
     Active Substance: EPIRUBICIN HYDROCHLORIDE
     Indication: Triple negative breast cancer
     Dosage: 100 MILLIGRAM/SQ. METER, EVERY 3 WEEKS (Q3W)
     Route: 042
     Dates: start: 20240310, end: 20240514

REACTIONS (4)
  - Myocarditis [Unknown]
  - Immune-mediated hyperthyroidism [Unknown]
  - N-terminal prohormone brain natriuretic peptide increased [Unknown]
  - Troponin increased [Unknown]

NARRATIVE: CASE EVENT DATE: 20240501
